FAERS Safety Report 8073699-9 (Version None)
Quarter: 2012Q1

REPORT INFORMATION
  Report Type: 
  Country: None (occurrence: None)
  Receive Date: 20120126
  Receipt Date: 20120119
  Transmission Date: 20120608
  Serious: Yes (Other)
  Sender: FDA-Public Use
  Company Number: PHHY2012GB004891

PATIENT
  Age: 62 Year
  Sex: Male

DRUGS (7)
  1. MIRTAZAPINE [Suspect]
     Indication: INSOMNIA
     Dosage: 15 MG, UNK
     Route: 048
     Dates: start: 20110818, end: 20111108
  2. MIRTAZAPINE [Suspect]
     Indication: DEPRESSION
     Dosage: 30 MG, UNK
     Route: 048
     Dates: start: 20111108, end: 20111117
  3. AMLODIPINE [Concomitant]
     Indication: HYPERTENSION
     Dosage: 10 MG, UNK
     Dates: start: 20111108
  4. RAMIPRIL [Concomitant]
     Indication: HYPERTENSION
     Dosage: 5 MG, UNK
     Dates: start: 20081113
  5. DIAZEPAM [Concomitant]
     Indication: MUSCLE SPASMS
     Dosage: 2 MG, UNK
     Dates: start: 20101201
  6. LANSOPRAZOLE [Concomitant]
     Indication: DYSPEPSIA
     Dosage: 15 MG, UNK
     Dates: start: 20021004
  7. NALOXONE HCL [Concomitant]
     Indication: BACK PAIN
     Dosage: UNK
     Dates: start: 20101223

REACTIONS (7)
  - DEPRESSED MOOD [None]
  - HYPERTENSIVE CRISIS [None]
  - HOSTILITY [None]
  - IMPAIRED SELF-CARE [None]
  - BLOOD PRESSURE INCREASED [None]
  - HALLUCINATION, AUDITORY [None]
  - ANGER [None]
